FAERS Safety Report 10573194 (Version 2)
Quarter: 2014Q4

REPORT INFORMATION
  Report Type: Spontaneous
  Country: US (occurrence: US)
  Receive Date: 20141110
  Receipt Date: 20141202
  Transmission Date: 20150529
  Serious: Yes (Death, Hospitalization, Other)
  Sender: FDA-Public Use
  Company Number: US-009507513-1410USA016223

PATIENT
  Age: 55 Year
  Sex: Male
  Weight: 169 kg

DRUGS (1)
  1. KEYTRUDA [Suspect]
     Active Substance: PEMBROLIZUMAB
     Indication: METASTATIC MALIGNANT MELANOMA
     Dosage: 50 MG, UNK (TOTAL DAILY DOSE 170 MG)
     Route: 042
     Dates: start: 20140423, end: 20141014

REACTIONS (7)
  - Cancer pain [Unknown]
  - Metastatic malignant melanoma [Fatal]
  - Urinary retention [Unknown]
  - Delirium [Unknown]
  - Cancer pain [Unknown]
  - Agitation [Unknown]
  - Restlessness [Unknown]

NARRATIVE: CASE EVENT DATE: 2014
